APPROVED DRUG PRODUCT: JANUMET
Active Ingredient: METFORMIN HYDROCHLORIDE; SITAGLIPTIN PHOSPHATE
Strength: 500MG;EQ 50MG BASE
Dosage Form/Route: TABLET;ORAL
Application: N022044 | Product #001 | TE Code: AB
Applicant: MERCK SHARP AND DOHME LLC A SUB OF MERCK AND CO INC
Approved: Mar 30, 2007 | RLD: Yes | RS: No | Type: RX

PATENTS:
Patent 7326708 | Expires: Nov 24, 2026
Patent 7326708*PED | Expires: May 24, 2027
Patent 8414921*PED | Expires: Jan 21, 2029
Patent 8414921 | Expires: Jul 21, 2028